FAERS Safety Report 14313207 (Version 1)
Quarter: 2017Q4

REPORT INFORMATION
  Report Type: Spontaneous
  Country: US (occurrence: US)
  Receive Date: 20171220
  Receipt Date: 20171220
  Transmission Date: 20180321
  Serious: No
  Sender: FDA-Public Use
  Company Number: None

PATIENT
  Sex: Female
  Weight: 63 kg

DRUGS (16)
  1. LATANOPROST. [Concomitant]
     Active Substance: LATANOPROST
  2. DOXYCYCLINE. [Concomitant]
     Active Substance: DOXYCYCLINE
  3. CALTRATE WITH VITAMIN D [Concomitant]
     Active Substance: CALCIUM CARBONATE\CHOLECALCIFEROL
  4. ASPIRIN. [Concomitant]
     Active Substance: ASPIRIN
  5. VITAMIN C [Concomitant]
     Active Substance: ASCORBIC ACID
  6. ROSUVASTATIN. [Concomitant]
     Active Substance: ROSUVASTATIN
  7. OMEGA3 [Concomitant]
  8. ALEVE [Concomitant]
     Active Substance: NAPROXEN SODIUM
  9. TARCEVA [Suspect]
     Active Substance: ERLOTINIB HYDROCHLORIDE
     Indication: LUNG DISORDER
     Route: 048
  10. LEVOTHYROXINE. [Concomitant]
     Active Substance: LEVOTHYROXINE
  11. DORZOLAMIDE-TIMOLOL [Concomitant]
     Active Substance: DORZOLAMIDE\TIMOLOL
  12. ATENOLOL-CHLORTHALIDONE [Concomitant]
     Active Substance: ATENOLOL\CHLORTHALIDONE
  13. LUTEIN [Concomitant]
     Active Substance: LUTEIN
  14. ICAPS AREDS 2 [Concomitant]
  15. CENTRUM ADULTS [Concomitant]
  16. HAIR SKIN AND NAILS [Concomitant]

REACTIONS (4)
  - Rash [None]
  - Dysgeusia [None]
  - Diarrhoea [None]
  - Weight decreased [None]
